FAERS Safety Report 8530772 (Version 4)
Quarter: 2015Q3

REPORT INFORMATION
  Report Type: Spontaneous
  Country: US (occurrence: US)
  Receive Date: 20120425
  Receipt Date: 20150728
  Transmission Date: 20151125
  Serious: Yes (Hospitalization, Disabling, Other)
  Sender: FDA-Public Use
  Company Number: US-MERCK-1204USA02916

PATIENT
  Sex: Female
  Weight: 66.35 kg

DRUGS (5)
  1. FOSAMAX [Suspect]
     Active Substance: ALENDRONATE SODIUM
     Indication: OSTEOPOROSIS PROPHYLAXIS
     Dosage: 70 MG, QW
     Route: 048
     Dates: start: 20030520, end: 20060415
  2. VITAMIN D [Concomitant]
     Active Substance: CHOLECALCIFEROL
  3. FOSAMAX [Suspect]
     Active Substance: ALENDRONATE SODIUM
     Indication: OSTEOPOROSIS POSTMENOPAUSAL
     Dosage: UNK UNK, QD
     Route: 048
     Dates: start: 1996, end: 20060415
  4. PREMARIN [Concomitant]
     Active Substance: ESTROGENS, CONJUGATED
  5. CALCIUM (UNSPECIFIED) [Concomitant]
     Active Substance: CALCIUM

REACTIONS (52)
  - Metrorrhagia [Unknown]
  - Sleep apnoea syndrome [Unknown]
  - Tachycardia [Unknown]
  - Atelectasis [Unknown]
  - Femur fracture [Unknown]
  - Insomnia [Unknown]
  - Fibromyalgia [Unknown]
  - Lumbar radiculopathy [Unknown]
  - Poor quality sleep [Unknown]
  - Diverticulum [Unknown]
  - Polydipsia [Unknown]
  - Gastrooesophageal reflux disease [Unknown]
  - Bone disorder [Unknown]
  - Femur fracture [Unknown]
  - Procedural haemorrhage [Unknown]
  - Kyphosis [Unknown]
  - Back pain [Unknown]
  - Irritable bowel syndrome [Unknown]
  - Uvuloplasty [Unknown]
  - Adenoidectomy [Unknown]
  - Impaired healing [Unknown]
  - Pain in jaw [Recovered/Resolved]
  - Intramedullary rod insertion [Unknown]
  - Intramedullary rod insertion [Unknown]
  - Hypertension [Unknown]
  - Osteopenia [Unknown]
  - Medical device complication [Unknown]
  - Medial tibial stress syndrome [Unknown]
  - Bursitis [Unknown]
  - Rheumatic disorder [Unknown]
  - Hypercalcaemia [Unknown]
  - Medical device removal [Unknown]
  - Osteoarthritis [Unknown]
  - Anaemia [Unknown]
  - Carpal tunnel decompression [Unknown]
  - Bursitis [Unknown]
  - Intramedullary rod insertion [Unknown]
  - Blood pressure increased [Unknown]
  - Anxiety [Unknown]
  - Treatment failure [Unknown]
  - Arthralgia [Unknown]
  - Femur fracture [Unknown]
  - Medical device removal [Unknown]
  - Sacroiliitis [Unknown]
  - Arrhythmia [Unknown]
  - Blood creatine phosphokinase increased [Unknown]
  - Cystitis [Unknown]
  - Dysuria [Unknown]
  - Mitral valve prolapse [Unknown]
  - Tonsillectomy [Unknown]
  - Polyuria [Unknown]
  - Arthralgia [Unknown]

NARRATIVE: CASE EVENT DATE: 1999
